FAERS Safety Report 7468359-9 (Version None)
Quarter: 2011Q2

REPORT INFORMATION
  Report Type: 
  Country: None (occurrence: None)
  Receive Date: 20110509
  Receipt Date: 20110426
  Transmission Date: 20111010
  Serious: Yes (Hospitalization)
  Sender: FDA-Public Use
  Company Number: US-JNJFOC-20110411271

PATIENT
  Age: 27 Year
  Sex: Male
  Weight: 84.6 kg

DRUGS (4)
  1. HYDROCODONE BITARTRATE [Suspect]
     Indication: DRUG WITHDRAWAL SYNDROME
  2. TYLENOL PM [Suspect]
     Indication: SLEEP DISORDER THERAPY
     Route: 065
  3. SOMA [Suspect]
     Indication: DRUG WITHDRAWAL SYNDROME
  4. AMBIEN [Suspect]
     Indication: SLEEP DISORDER THERAPY

REACTIONS (5)
  - AGITATION [None]
  - ENCEPHALOPATHY [None]
  - ACUTE HEPATIC FAILURE [None]
  - RENAL FAILURE [None]
  - METABOLIC ACIDOSIS [None]
